FAERS Safety Report 10024634 (Version 1)
Quarter: 2014Q1

REPORT INFORMATION
  Report Type: Spontaneous
  Country: DE (occurrence: DE)
  Receive Date: 20140320
  Receipt Date: 20140320
  Transmission Date: 20141002
  Serious: Yes (Other)
  Sender: FDA-Public Use
  Company Number: DE-PFIZER INC-2014074157

PATIENT
  Age: 62 Year
  Sex: Male
  Weight: 100 kg

DRUGS (1)
  1. TAZOBAC [Suspect]
     Indication: PNEUMONIA
     Dosage: 2X4,5 G
     Route: 042
     Dates: start: 20140301

REACTIONS (1)
  - Delirium [Recovered/Resolved]
